FAERS Safety Report 14071753 (Version 5)
Quarter: 2022Q2

REPORT INFORMATION
  Report Type: Spontaneous
  Country: US (occurrence: US)
  Receive Date: 20171010
  Receipt Date: 20220502
  Transmission Date: 20220721
  Serious: Yes (Hospitalization, Other)
  Sender: FDA-Public Use
  Company Number: US-SA-2017SA153831

PATIENT
  Age: 59 Year
  Sex: Female

DRUGS (13)
  1. DUPIXENT [Suspect]
     Active Substance: DUPILUMAB
     Indication: Dermatitis atopic
     Dosage: 1 DF,QOW
     Route: 058
     Dates: start: 20170524
  2. DUPIXENT [Suspect]
     Active Substance: DUPILUMAB
     Dosage: 300 MG, QW
     Route: 058
  3. EUCRISA [Concomitant]
     Active Substance: CRISABOROLE
  4. EZETIMIBE [Concomitant]
     Active Substance: EZETIMIBE
  5. DILTIAZEM [Concomitant]
     Active Substance: DILTIAZEM
  6. ASPIRIN [Concomitant]
     Active Substance: ASPIRIN
  7. PANTOPRAZOLE SODIUM [Concomitant]
     Active Substance: PANTOPRAZOLE SODIUM
  8. CARVEDILOL [Concomitant]
     Active Substance: CARVEDILOL
  9. VENTOLIN HFA [Concomitant]
     Active Substance: ALBUTEROL SULFATE
  10. LEVOCETIRIZINE DIHYDROCHLORIDE [Concomitant]
     Active Substance: LEVOCETIRIZINE DIHYDROCHLORIDE
  11. HYDROXYZINE HYDROCHLORIDE [Concomitant]
     Active Substance: HYDROXYZINE HYDROCHLORIDE
  12. CYCLOBENZAPRINE [Concomitant]
     Active Substance: CYCLOBENZAPRINE
  13. ETODOLAC [Concomitant]
     Active Substance: ETODOLAC

REACTIONS (7)
  - Pneumonia [Unknown]
  - Haemoptysis [Unknown]
  - Pneumothorax [Unknown]
  - Surgery [Unknown]
  - Influenza [Unknown]
  - Dermatitis atopic [Recovered/Resolved]
  - Inappropriate schedule of product administration [Unknown]

NARRATIVE: CASE EVENT DATE: 20220421
